FAERS Safety Report 16769212 (Version 1)
Quarter: 2019Q3

REPORT INFORMATION
  Report Type: Spontaneous
  Country: DE (occurrence: DE)
  Receive Date: 20190903
  Receipt Date: 20190903
  Transmission Date: 20191005
  Serious: Yes (Life-Threatening, Hospitalization, Disabling, Other)
  Sender: FDA-Public Use
  Company Number: DE-ELI_LILLY_AND_COMPANY-DE201909000380

PATIENT
  Age: 31 Year
  Sex: Female

DRUGS (12)
  1. KEYTRUDA [Suspect]
     Active Substance: PEMBROLIZUMAB
     Indication: NON-SMALL CELL LUNG CANCER STAGE IV
     Dosage: 200 MILLIGRAM, Q3W
     Route: 065
     Dates: start: 20181227
  2. KEYTRUDA [Suspect]
     Active Substance: PEMBROLIZUMAB
     Dosage: 200 MILLIGRAM, Q3W
     Route: 065
     Dates: start: 20190118
  3. KEYTRUDA [Suspect]
     Active Substance: PEMBROLIZUMAB
     Dosage: 200 MILLIGRAM, Q3W
     Route: 065
     Dates: start: 20190523, end: 20190523
  4. CARBOPLATIN. [Suspect]
     Active Substance: CARBOPLATIN
     Indication: NON-SMALL CELL LUNG CANCER STAGE IV
     Dosage: 1 DOSAGE FORM, EVERY THREE WEEKS
     Route: 065
     Dates: start: 20181227
  5. PEMETREXED. [Suspect]
     Active Substance: PEMETREXED
     Dosage: SECOND CYCLE
     Route: 065
     Dates: start: 20190118, end: 20190118
  6. KEYTRUDA [Suspect]
     Active Substance: PEMBROLIZUMAB
     Dosage: 200 MILLIGRAM, Q3W
     Route: 065
     Dates: start: 20190503
  7. PEMETREXED. [Suspect]
     Active Substance: PEMETREXED
     Indication: NON-SMALL CELL LUNG CANCER STAGE IV
     Dosage: FIRST CYCLE
     Route: 065
     Dates: start: 20181227
  8. KEYTRUDA [Suspect]
     Active Substance: PEMBROLIZUMAB
     Dosage: 200 MILLIGRAM, Q3W
     Route: 065
     Dates: start: 20190412
  9. CARBOPLATIN. [Suspect]
     Active Substance: CARBOPLATIN
     Dosage: 1 DOSAGE FORM, CYCLICALLY (SECOND CYCLE)
     Route: 065
     Dates: start: 20190118, end: 20190118
  10. KEYTRUDA [Suspect]
     Active Substance: PEMBROLIZUMAB
     Dosage: 200 MILLIGRAM, Q3W
     Route: 065
     Dates: start: 20190301
  11. KEYTRUDA [Suspect]
     Active Substance: PEMBROLIZUMAB
     Dosage: 200 MILLIGRAM, Q3W
     Route: 065
     Dates: start: 20190322
  12. KEYTRUDA [Suspect]
     Active Substance: PEMBROLIZUMAB
     Dosage: 200 MILLIGRAM, Q3W
     Route: 065
     Dates: start: 20190208

REACTIONS (12)
  - Cardiac failure chronic [Unknown]
  - Lymphadenopathy mediastinal [Unknown]
  - Ventricular tachycardia [Unknown]
  - Inappropriate schedule of product administration [Unknown]
  - Left ventricular dysfunction [Not Recovered/Not Resolved]
  - Drug intolerance [Unknown]
  - Pleural effusion [Unknown]
  - Autoimmune myocarditis [Recovered/Resolved with Sequelae]
  - Cardiac failure [Unknown]
  - Congestive cardiomyopathy [Recovered/Resolved with Sequelae]
  - Off label use [Unknown]
  - Performance status decreased [Unknown]

NARRATIVE: CASE EVENT DATE: 20190117
